FAERS Safety Report 14687332 (Version 1)
Quarter: 2018Q1

REPORT INFORMATION
  Report Type: Spontaneous
  Country: US (occurrence: US)
  Receive Date: 20180328
  Receipt Date: 20180328
  Transmission Date: 20180509
  Serious: Yes (Other)
  Sender: FDA-Public Use
  Company Number: US-TEVA-2018-US-873853

PATIENT
  Age: 38 Year

DRUGS (1)
  1. GIANVI [Suspect]
     Active Substance: DROSPIRENONE\ETHINYL ESTRADIOL
     Route: 065

REACTIONS (4)
  - Hypoaesthesia [Unknown]
  - Cerebrovascular accident [Unknown]
  - Amnesia [Unknown]
  - Thrombosis [Unknown]
